FAERS Safety Report 19649699 (Version 1)
Quarter: 2021Q3

REPORT INFORMATION
  Report Type: Report from Study
  Country: CA (occurrence: CA)
  Receive Date: 20210802
  Receipt Date: 20210802
  Transmission Date: 20211014
  Serious: Yes (Other)
  Sender: FDA-Public Use
  Company Number: CA-JNJFOC-20210758037

PATIENT
  Age: 15 Year
  Sex: Male
  Weight: 50 kg

DRUGS (1)
  1. REMICADE [Suspect]
     Active Substance: INFLIXIMAB
     Indication: CROHN^S DISEASE
     Route: 042
     Dates: start: 20210428

REACTIONS (2)
  - Haematochezia [Not Recovered/Not Resolved]
  - Proctitis [Not Recovered/Not Resolved]

NARRATIVE: CASE EVENT DATE: 20210726
